FAERS Safety Report 4376174-8 (Version None)
Quarter: 2004Q2

REPORT INFORMATION
  Report Type: 
  Country: None (occurrence: None)
  Receive Date: 20040607
  Receipt Date: 20040528
  Transmission Date: 20050107
  Serious: Yes (Other)
  Sender: FDA-Public Use
  Company Number: CA-2004-026099

PATIENT
  Age: 40 Year
  Sex: Female

DRUGS (4)
  1. BETASERON [Suspect]
     Indication: MULTIPLE SCLEROSIS RELAPSE
     Dosage: SUBCUTANEOUS
     Route: 058
     Dates: start: 19991220
  2. CLONAZEPAM [Concomitant]
  3. MINESTRIN [Concomitant]
  4. DICLOFENAC SODIUM [Concomitant]

REACTIONS (7)
  - COGNITIVE DISORDER [None]
  - DEMENTIA ALZHEIMER'S TYPE [None]
  - DEPRESSION [None]
  - IRRITABLE BOWEL SYNDROME [None]
  - RAYNAUD'S PHENOMENON [None]
  - STRESS SYMPTOMS [None]
  - SYSTEMIC LUPUS ERYTHEMATOSUS [None]
